FAERS Safety Report 13942292 (Version 3)
Quarter: 2018Q3

REPORT INFORMATION
  Report Type: Spontaneous
  Country: AR (occurrence: AR)
  Receive Date: 20170907
  Receipt Date: 20180809
  Transmission Date: 20181010
  Serious: Yes (Other)
  Sender: FDA-Public Use
  Company Number: AR-PFIZER INC-2016562757

PATIENT
  Age: 40 Year
  Sex: Male

DRUGS (1)
  1. SUTENT [Suspect]
     Active Substance: SUNITINIB MALATE
     Indication: METASTATIC RENAL CELL CARCINOMA
     Dosage: 50 MG, DAILY, SCHEME 4/2
     Dates: start: 20160308

REACTIONS (2)
  - Movement disorder [Not Recovered/Not Resolved]
  - Femur fracture [Unknown]

NARRATIVE: CASE EVENT DATE: 2016
